FAERS Safety Report 14820012 (Version 1)
Quarter: 2018Q2

REPORT INFORMATION
  Report Type: Spontaneous
  Country: GR (occurrence: GR)
  Receive Date: 20180427
  Receipt Date: 20180427
  Transmission Date: 20180711
  Serious: Yes (Other)
  Sender: FDA-Public Use
  Company Number: GR-TEVA-2018-GR-883139

PATIENT
  Age: 43 Year

DRUGS (4)
  1. DOCETAXEL. [Suspect]
     Active Substance: DOCETAXEL
     Indication: ADENOCARCINOMA
     Dosage: 75 MG/M2 DAILY;
     Route: 065
     Dates: start: 201206
  2. PEMETREXED. [Suspect]
     Active Substance: PEMETREXED
     Indication: ADENOCARCINOMA
     Dosage: 500 MG/M2 DAILY;
     Route: 065
     Dates: start: 201111
  3. CRIZOTINIB [Suspect]
     Active Substance: CRIZOTINIB
     Indication: ADENOCARCINOMA
     Dosage: 500 MILLIGRAM DAILY;
     Route: 065
     Dates: start: 201211
  4. CISPLATIN. [Suspect]
     Active Substance: CISPLATIN
     Indication: ADENOCARCINOMA
     Dosage: 80 MG/M2 DAILY;
     Route: 065
     Dates: start: 201111

REACTIONS (7)
  - Nervous system disorder [Unknown]
  - Malaise [Unknown]
  - Product use in unapproved indication [Unknown]
  - Fatigue [Unknown]
  - Cough [Unknown]
  - Respiratory disorder [Unknown]
  - Neoplasm progression [Unknown]

NARRATIVE: CASE EVENT DATE: 201702
